FAERS Safety Report 25992426 (Version 1)
Quarter: 2025Q4

REPORT INFORMATION
  Report Type: Spontaneous
  Country: US (occurrence: US)
  Receive Date: 20251103
  Receipt Date: 20251103
  Transmission Date: 20260118
  Serious: No
  Sender: GALPHARM INTERNATIONAL
  Company Number: US-PERRIGO-24US009078

PATIENT
  Sex: Female

DRUGS (5)
  1. UNISOM SLEEPTABS [Suspect]
     Active Substance: DOXYLAMINE SUCCINATE
     Indication: Insomnia
     Dosage: 12.5 MG, UNKNOWN
     Route: 048
  2. UNISOM SLEEPTABS [Suspect]
     Active Substance: DOXYLAMINE SUCCINATE
     Dosage: 25 MG, UNKNOWN
     Route: 048
  3. VICKS NYQUIL [Suspect]
     Active Substance: ACETAMINOPHEN\DEXTROMETHORPHAN HYDROBROMIDE\DOXYLAMINE SUCCINATE
     Indication: Insomnia
     Dosage: UNKNOWN, UNKNOWN
     Route: 048
  4. TYLENOL PM [Suspect]
     Active Substance: ACETAMINOPHEN\DIPHENHYDRAMINE
     Indication: Insomnia
     Dosage: UNKNOWN, UNKNOWN
     Route: 048
  5. MELATONIN [Suspect]
     Active Substance: MELATONIN
     Indication: Insomnia
     Dosage: UNKNOWN, UNKNOWN
     Route: 048

REACTIONS (3)
  - Panic attack [Unknown]
  - Underdose [Unknown]
  - Therapeutic product effect decreased [Unknown]
